FAERS Safety Report 22588300 (Version 6)
Quarter: 2024Q1

REPORT INFORMATION
  Report Type: Spontaneous
  Country: SI (occurrence: SI)
  Receive Date: 20230612
  Receipt Date: 20240215
  Transmission Date: 20240409
  Serious: Yes (Death, Hospitalization, Other)
  Sender: FDA-Public Use
  Company Number: SI-002147023-NVSC2023SI121035

PATIENT
  Age: 42 Year
  Sex: Male
  Weight: 62 kg

DRUGS (23)
  1. REMICADE [Interacting]
     Active Substance: INFLIXIMAB
     Indication: Diarrhoea
     Dosage: 5 MG/KG
     Route: 042
     Dates: start: 202207
  2. REMICADE [Interacting]
     Active Substance: INFLIXIMAB
     Indication: Abdominal pain upper
  3. REMICADE [Interacting]
     Active Substance: INFLIXIMAB
     Indication: Weight decreased
  4. SULFAMETHOXAZOLE\TRIMETHOPRIM [Suspect]
     Active Substance: SULFAMETHOXAZOLE\TRIMETHOPRIM
     Indication: Abdominal pain upper
     Dosage: 1 DOSAGE FORM (80/400)
     Route: 048
     Dates: start: 20220707
  5. SULFAMETHOXAZOLE\TRIMETHOPRIM [Suspect]
     Active Substance: SULFAMETHOXAZOLE\TRIMETHOPRIM
     Indication: Weight decreased
  6. SULFAMETHOXAZOLE\TRIMETHOPRIM [Suspect]
     Active Substance: SULFAMETHOXAZOLE\TRIMETHOPRIM
     Indication: Diarrhoea
  7. RIFAMPIN [Suspect]
     Active Substance: RIFAMPIN
     Indication: Antibiotic prophylaxis
     Route: 065
  8. ISONIAZID [Suspect]
     Active Substance: ISONIAZID
     Indication: Antibiotic prophylaxis
     Route: 065
  9. INFLIXIMAB [Suspect]
     Active Substance: INFLIXIMAB
     Indication: Diarrhoea
     Route: 042
     Dates: start: 20220708
  10. INFLIXIMAB [Suspect]
     Active Substance: INFLIXIMAB
     Indication: Abdominal pain upper
  11. INFLIXIMAB [Suspect]
     Active Substance: INFLIXIMAB
     Indication: Weight decreased
  12. ERGOCALCIFEROL [Concomitant]
     Active Substance: ERGOCALCIFEROL
     Indication: Product used for unknown indication
  13. SOLU-MEDROL [Concomitant]
     Active Substance: METHYLPREDNISOLONE SODIUM SUCCINATE
     Indication: Product used for unknown indication
     Dosage: 125 MG, QD
     Route: 065
     Dates: start: 20220707, end: 20230713
  14. MEDROL [Concomitant]
     Active Substance: METHYLPREDNISOLONE
     Indication: Metastases to central nervous system
     Dosage: UNK (IN DESCENDING SCHEME)
     Route: 048
     Dates: start: 202207
  15. MEDROL [Concomitant]
     Active Substance: METHYLPREDNISOLONE
     Dosage: 48 MG, OTHER (32 MG IN THE MORNING + 16 MG IN THE EVENING)
     Route: 065
     Dates: start: 202305
  16. MEDROL [Concomitant]
     Active Substance: METHYLPREDNISOLONE
     Route: 065
     Dates: start: 20230713, end: 20230716
  17. MEDROL [Concomitant]
     Active Substance: METHYLPREDNISOLONE
     Route: 048
     Dates: end: 202305
  18. MEDROL [Concomitant]
     Active Substance: METHYLPREDNISOLONE
     Route: 065
     Dates: start: 20220727
  19. MEDROL [Concomitant]
     Active Substance: METHYLPREDNISOLONE
     Route: 065
     Dates: start: 20230722, end: 20230726
  20. MEDROL [Concomitant]
     Active Substance: METHYLPREDNISOLONE
     Route: 065
     Dates: start: 20230717, end: 20230721
  21. CHOLECALCIFEROL [Concomitant]
     Active Substance: CHOLECALCIFEROL
     Indication: Product used for unknown indication
     Dosage: 35 DRP (ON WEDNESDAYS)
     Route: 065
  22. ISONIAZID\RIFAMPIN [Concomitant]
     Active Substance: ISONIAZID\RIFAMPIN
     Indication: Antibiotic prophylaxis
     Dosage: 2 DOSAGE FORM, QD
     Dates: start: 20220714, end: 20221015
  23. RIFAMPIN [Concomitant]
     Active Substance: RIFAMPIN
     Indication: Antibiotic prophylaxis
     Route: 065
     Dates: start: 20220714, end: 20221015

REACTIONS (22)
  - Metastases to central nervous system [Fatal]
  - Disease progression [Fatal]
  - Diarrhoea [Recovered/Resolved]
  - Inflammatory bowel disease [Unknown]
  - Haematochezia [Recovering/Resolving]
  - Metastases to soft tissue [Not Recovered/Not Resolved]
  - Weight decreased [Recovered/Resolved]
  - Asthenia [Unknown]
  - Abdominal pain upper [Recovered/Resolved]
  - Enterocolitis [Unknown]
  - Mucous stools [Recovering/Resolving]
  - Liver disorder [Unknown]
  - Enterocolitis [Unknown]
  - Alanine aminotransferase increased [Unknown]
  - Drug interaction [Unknown]
  - Aspartate aminotransferase increased [Recovered/Resolved]
  - Serum ferritin increased [Unknown]
  - Nausea [Unknown]
  - Transferrin decreased [Unknown]
  - Product use in unapproved indication [Unknown]
  - Decreased appetite [Recovered/Resolved]
  - Interferon gamma release assay positive [Unknown]

NARRATIVE: CASE EVENT DATE: 20220701
